FAERS Safety Report 11827252 (Version 2)
Quarter: 2015Q4

REPORT INFORMATION
  Report Type: Spontaneous
  Country: FR (occurrence: FR)
  Receive Date: 20151211
  Receipt Date: 20151216
  Transmission Date: 20160305
  Serious: Yes (Hospitalization)
  Sender: FDA-Public Use
  Company Number: PHHY2014FR177317

PATIENT
  Age: 14 Year
  Sex: Male

DRUGS (12)
  1. IFOSFAMIDE. [Suspect]
     Active Substance: IFOSFAMIDE
     Indication: EWING^S SARCOMA
     Dosage: 3 ?G/M2, CYC
     Route: 042
     Dates: start: 20140626, end: 20140627
  2. PLITICAN [Suspect]
     Active Substance: ALIZAPRIDE HYDROCHLORIDE
     Indication: NAUSEA
     Dosage: UNK
     Route: 042
     Dates: start: 20140626, end: 20140627
  3. NALBUPHINE [Suspect]
     Active Substance: NALBUPHINE
     Indication: PAIN
     Dosage: UNK
     Route: 042
     Dates: start: 20140627, end: 20140628
  4. EMEND [Suspect]
     Active Substance: APREPITANT
     Indication: NAUSEA
     Dosage: UNK
     Route: 048
     Dates: start: 20140626, end: 20140628
  5. ZOPHREN [Suspect]
     Active Substance: ONDANSETRON
     Indication: NAUSEA
     Dosage: UNK
     Route: 042
     Dates: start: 20140626, end: 20140628
  6. UROMITEXAN [Suspect]
     Active Substance: MESNA
     Indication: EWING^S SARCOMA
     Dosage: 400 MG/ML, UNK
     Route: 042
     Dates: start: 20140626, end: 20140627
  7. IFOSFAMIDE. [Suspect]
     Active Substance: IFOSFAMIDE
     Dosage: 5.6 G, UNK
     Dates: start: 20140721
  8. IFOSFAMIDE. [Suspect]
     Active Substance: IFOSFAMIDE
     Dosage: 5.5 G, UNK
     Dates: start: 20140915
  9. ETOPOPHOS [Suspect]
     Active Substance: ETOPOSIDE PHOSPHATE
     Indication: EWING^S SARCOMA
     Dosage: 100 MG, UNK
     Route: 042
     Dates: start: 20140626, end: 20140628
  10. PARACETAMOL [Suspect]
     Active Substance: ACETAMINOPHEN
     Indication: PAIN
     Dosage: UNK
     Route: 042
     Dates: start: 20140627, end: 20140628
  11. DOXORUBICIN HYDROCHLORIDE. [Suspect]
     Active Substance: DOXORUBICIN HYDROCHLORIDE
     Indication: EWING^S SARCOMA
     Dosage: UNK
     Route: 042
     Dates: start: 20140626, end: 20140628
  12. VINCRISTINE SULFATE. [Suspect]
     Active Substance: VINCRISTINE SULFATE
     Indication: EWING^S SARCOMA
     Dosage: 2 MG/ML, UNK
     Route: 042
     Dates: start: 20140626, end: 20140626

REACTIONS (3)
  - Amnesia [Recovered/Resolved]
  - Somnolence [Recovered/Resolved]
  - Somnolence [Recovered/Resolved]

NARRATIVE: CASE EVENT DATE: 20140627
